FAERS Safety Report 7809366-3 (Version None)
Quarter: 2011Q4

REPORT INFORMATION
  Report Type: 
  Country: None (occurrence: None)
  Receive Date: 20111012
  Receipt Date: 20111005
  Transmission Date: 20120403
  Serious: No
  Sender: FDA-Public Use
  Company Number: US-BAYER-2011-097627

PATIENT
  Age: 59 Year
  Sex: Female

DRUGS (2)
  1. SORAFENIB (RAF KINASE INHIBITOR) [Suspect]
     Indication: METASTASES TO LUNG
     Dosage: 400 MG, BID
     Route: 048
  2. SORAFENIB (RAF KINASE INHIBITOR) [Suspect]
     Dosage: 350 MG, BID
     Route: 048

REACTIONS (2)
  - PALMAR-PLANTAR ERYTHRODYSAESTHESIA SYNDROME [None]
  - EPISTAXIS [None]
